FAERS Safety Report 5026270-7 (Version None)
Quarter: 2006Q2

REPORT INFORMATION
  Report Type: 
  Country: None (occurrence: None)
  Receive Date: 20060608
  Receipt Date: 20060526
  Transmission Date: 20061013
  Serious: Yes (Hospitalization)
  Sender: FDA-Public Use
  Company Number: 2006059833

PATIENT
  Age: 51 Year
  Sex: Male
  Weight: 75 kg

DRUGS (8)
  1. CLINDAMYCIN HYDROCHLORIDE [Suspect]
     Indication: NEOPLASM
     Dosage: ORAL
     Route: 048
     Dates: start: 20050101, end: 20060101
  2. CEFUROXIME [Suspect]
     Indication: NEOPLASM
     Dosage: ORAL
     Route: 048
     Dates: start: 20050101, end: 20060101
  3. VORICONAZOLE (VORICONAZOLE) [Suspect]
     Indication: NEOPLASM
     Dosage: ORAL
     Route: 048
     Dates: start: 20050101, end: 20060101
  4. SU-014,813 (SU-014,813) [Suspect]
     Indication: NEOPLASM
     Dosage: 200 MG (50 MG, DAILY), ORAL
     Route: 048
     Dates: start: 20041103
  5. DURAGESIC-100 [Concomitant]
  6. LYRICA [Concomitant]
  7. MORPHINE SULFATE [Concomitant]
  8. METOCLOPRAMIDE [Concomitant]

REACTIONS (4)
  - GASTROINTESTINAL HAEMORRHAGE [None]
  - INTERNATIONAL NORMALISED RATIO INCREASED [None]
  - LUNG ABSCESS [None]
  - VITAMIN K DEFICIENCY [None]
